FAERS Safety Report 10084176 (Version 2)
Quarter: 2014Q2

REPORT INFORMATION
  Report Type: Spontaneous
  Country: US (occurrence: US)
  Receive Date: 20140417
  Receipt Date: 20140604
  Transmission Date: 20141212
  Serious: No
  Sender: FDA-Public Use
  Company Number: US-009507513-1404USA008627

PATIENT
  Age: 15 Year
  Sex: Female
  Weight: 92.63 kg

DRUGS (2)
  1. NEXPLANON [Suspect]
     Indication: CONTRACEPTION
     Dosage: 1 ROD/THREE YEARS
     Route: 059
     Dates: start: 20130415
  2. ZOLOFT [Concomitant]

REACTIONS (4)
  - Device breakage [Unknown]
  - Device kink [Unknown]
  - Headache [Recovering/Resolving]
  - Pain in extremity [Unknown]
